FAERS Safety Report 5797243-1 (Version None)
Quarter: 2008Q3

REPORT INFORMATION
  Report Type: 
  Country: None (occurrence: None)
  Receive Date: 20080701
  Receipt Date: 20080620
  Transmission Date: 20090109
  Serious: Yes (Hospitalization, Disabling, Other)
  Sender: FDA-Public Use
  Company Number: DK-MERCK-0610DNK00007

PATIENT
  Age: 51 Year
  Sex: Female
  Weight: 70 kg

DRUGS (3)
  1. SINGULAIR [Suspect]
     Indication: ASTHMA
     Route: 048
     Dates: start: 20010501, end: 20030101
  2. SINGULAIR [Suspect]
     Route: 048
     Dates: start: 20060101, end: 20060201
  3. PREDNISOLONE [Concomitant]
     Indication: ASTHMA
     Route: 065

REACTIONS (3)
  - ALLERGIC GRANULOMATOUS ANGIITIS [None]
  - COLON CANCER [None]
  - DRUG INEFFECTIVE [None]
